FAERS Safety Report 16081926 (Version 3)
Quarter: 2019Q2

REPORT INFORMATION
  Report Type: Spontaneous
  Country: JP (occurrence: JP)
  Receive Date: 20190317
  Receipt Date: 20190503
  Transmission Date: 20190711
  Serious: Yes (Hospitalization)
  Sender: FDA-Public Use
  Company Number: JP-ROCHE-2283799

PATIENT
  Age: 78 Year
  Sex: Male

DRUGS (7)
  1. DIOVAN [Concomitant]
     Active Substance: VALSARTAN
     Dosage: 40 MG/DAY
     Route: 048
     Dates: start: 201401
  2. ESOMEPRAZOLE. [Concomitant]
     Active Substance: ESOMEPRAZOLE MAGNESIUM
     Dosage: 10 MG/DAY
     Route: 048
     Dates: start: 201401
  3. ELIQUIS [Concomitant]
     Active Substance: APIXABAN
     Dosage: 20 MG/DAY
     Route: 048
     Dates: start: 201401
  4. JANUVIA [Concomitant]
     Active Substance: SITAGLIPTIN PHOSPHATE
     Dosage: 50 MG/DAY
     Route: 048
     Dates: start: 201401
  5. MYSLEE [Concomitant]
     Active Substance: ZOLPIDEM TARTRATE
     Dosage: 10 MG/DAY
     Route: 048
     Dates: start: 201401
  6. XOFLUZA [Suspect]
     Active Substance: BALOXAVIR MARBOXIL
     Indication: INFLUENZA
     Route: 048
     Dates: start: 20190206, end: 20190206
  7. URITOS [Concomitant]
     Active Substance: IMIDAFENACIN
     Dosage: 0.4 MG/DAY
     Route: 048
     Dates: start: 201401

REACTIONS (6)
  - Decreased appetite [Recovered/Resolved]
  - Muscle spasms [Recovered/Resolved]
  - Melaena [Recovering/Resolving]
  - Dizziness [Recovered/Resolved]
  - Epistaxis [Recovering/Resolving]
  - Feeling abnormal [Recovered/Resolved]

NARRATIVE: CASE EVENT DATE: 20190208
